FAERS Safety Report 22639782 (Version 1)
Quarter: 2023Q2

REPORT INFORMATION
  Report Type: Spontaneous
  Country: AE (occurrence: AE)
  Receive Date: 20230626
  Receipt Date: 20230626
  Transmission Date: 20230722
  Serious: Yes (Hospitalization)
  Sender: FDA-Public Use
  Company Number: AE-PFIZER INC-PV202300109625

PATIENT
  Age: 67 Year
  Sex: Male

DRUGS (1)
  1. LORBRENA [Suspect]
     Active Substance: LORLATINIB
     Indication: Non-small cell lung cancer
     Dosage: 100 MG, DAILY
     Route: 048
     Dates: start: 20230127, end: 20230513

REACTIONS (2)
  - Loss of consciousness [Unknown]
  - Logorrhoea [Unknown]

NARRATIVE: CASE EVENT DATE: 20230514
